FAERS Safety Report 4543822-9 (Version None)
Quarter: 2005Q1

REPORT INFORMATION
  Report Type: 
  Country: None (occurrence: None)
  Receive Date: 20050103
  Receipt Date: 20040211
  Transmission Date: 20050727
  Serious: Yes (Hospitalization)
  Sender: FDA-Public Use
  Company Number: GXKR2004US00580

PATIENT
  Age: 43 Year
  Sex: Male
  Weight: 71 kg

DRUGS (5)
  1. FLUOXETINE [Suspect]
  2. MEPERIDINE HCL [Suspect]
     Indication: PREMEDICATION
     Dosage: 50 MG, INTRAVENOUS
     Route: 042
  3. ROSIGLITAZONE (ROSIGLITAZONE) [Concomitant]
  4. FENOFIBRATE [Concomitant]
  5. MIDAZOLAM HCL [Concomitant]

REACTIONS (5)
  - DRUG INTERACTION [None]
  - ELECTROCARDIOGRAM ABNORMAL [None]
  - OXYGEN SATURATION DECREASED [None]
  - SEROTONIN SYNDROME [None]
  - VOMITING [None]
